FAERS Safety Report 4516395-4 (Version None)
Quarter: 2004Q4

REPORT INFORMATION
  Report Type: 
  Country: None (occurrence: None)
  Receive Date: 20041202
  Receipt Date: 20041129
  Transmission Date: 20050328
  Serious: Yes (Other)
  Sender: FDA-Public Use
  Company Number: 200421721GDDC

PATIENT
  Age: 66 Year
  Sex: Male
  Weight: 108 kg

DRUGS (6)
  1. LANTUS [Suspect]
     Dosage: DOSE UNIT: UNITS
     Route: 058
  2. METRONIDAZOLE [Suspect]
  3. LOSARTAN [Concomitant]
     Route: 048
  4. METFORMIN [Concomitant]
     Route: 048
  5. CO-PROXAMOL [Concomitant]
  6. PIROXICAM [Concomitant]
     Route: 048

REACTIONS (2)
  - DRUG INTERACTION [None]
  - HYPOGLYCAEMIA [None]
